FAERS Safety Report 19090951 (Version 3)
Quarter: 2021Q2

REPORT INFORMATION
  Report Type: Spontaneous
  Country: IT (occurrence: IT)
  Receive Date: 20210405
  Receipt Date: 20210430
  Transmission Date: 20210717
  Serious: Yes (Hospitalization, Other)
  Sender: FDA-Public Use
  Company Number: IT-SA-2021SA103536

PATIENT
  Age: 8 Year
  Sex: Female

DRUGS (9)
  1. BUSULFAN. [Suspect]
     Active Substance: BUSULFAN
     Indication: BONE MARROW CONDITIONING REGIMEN
  2. DEFEROXAMINE [Concomitant]
     Active Substance: DEFEROXAMINE MESYLATE
     Indication: CHELATION THERAPY
     Dosage: UNK UNK, QW
  3. ANTI?THYMOCYTE GLOBULIN (RABBIT) NOS [Suspect]
     Active Substance: LAPINE T-LYMPHOCYTE IMMUNE GLOBULIN
     Indication: BONE MARROW CONDITIONING REGIMEN
     Dosage: UNK
  4. MEGALOTECT [Concomitant]
     Indication: ANTIVIRAL PROPHYLAXIS
     Dosage: 100 IU/KG, BIW
  5. FLUDARABINE PHOSPHATE. [Suspect]
     Active Substance: FLUDARABINE PHOSPHATE
     Indication: BONE MARROW CONDITIONING REGIMEN
     Dosage: UNK
  6. MYCOPHENOLATE MOFETIL. [Suspect]
     Active Substance: MYCOPHENOLATE MOFETIL
     Indication: PROPHYLAXIS AGAINST GRAFT VERSUS HOST DISEASE
     Dosage: UNK
  7. FOLIC ACID. [Concomitant]
     Active Substance: FOLIC ACID
     Indication: SUPPLEMENTATION THERAPY
  8. TACROLIMUS. [Suspect]
     Active Substance: TACROLIMUS
     Indication: PROPHYLAXIS AGAINST GRAFT VERSUS HOST DISEASE
     Dosage: UNK
  9. THIOTEPA. [Suspect]
     Active Substance: THIOTEPA
     Indication: BONE MARROW CONDITIONING REGIMEN
     Dosage: UNK

REACTIONS (6)
  - Cytomegalovirus viraemia [Recovered/Resolved]
  - Pyrexia [Recovered/Resolved]
  - Transplant failure [Recovered/Resolved]
  - Off label use [Unknown]
  - Viral haemorrhagic cystitis [Recovered/Resolved]
  - Cytomegalovirus infection reactivation [Recovered/Resolved]
